FAERS Safety Report 7072187-6 (Version None)
Quarter: 2010Q4

REPORT INFORMATION
  Report Type: 
  Country: None (occurrence: None)
  Receive Date: 20101029
  Receipt Date: 20100129
  Transmission Date: 20110411
  Serious: No
  Sender: FDA-Public Use
  Company Number: A0835179A

PATIENT
  Age: 78 Year
  Sex: Male

DRUGS (13)
  1. ADVAIR DISKUS 100/50 [Suspect]
     Indication: CHRONIC OBSTRUCTIVE PULMONARY DISEASE
     Dosage: 1PUFF PER DAY
     Route: 055
     Dates: start: 20091001
  2. PREDNISONE [Concomitant]
  3. ASPIRIN [Concomitant]
  4. COREG [Concomitant]
  5. MAGNESIUM [Concomitant]
  6. POTASSIUM CHLORIDE [Concomitant]
  7. PLAVIX [Concomitant]
  8. FUROSEMIDE [Concomitant]
  9. LIPITOR [Concomitant]
  10. NEXIUM [Concomitant]
  11. CYMBALTA [Concomitant]
  12. COUGH MEDICATION [Concomitant]
  13. ACTIVATED CHARCOAL [Concomitant]

REACTIONS (4)
  - DIZZINESS [None]
  - DYSPNOEA [None]
  - FEELING HOT [None]
  - PRODUCT QUALITY ISSUE [None]
